FAERS Safety Report 12164394 (Version 5)
Quarter: 2019Q4

REPORT INFORMATION
  Report Type: Report from Study
  Country: US (occurrence: US)
  Receive Date: 20160309
  Receipt Date: 20191022
  Transmission Date: 20200122
  Serious: Yes (Other)
  Sender: FDA-Public Use
  Company Number: US-ROCHE-1660698

PATIENT
  Sex: Female

DRUGS (1)
  1. XOLAIR [Suspect]
     Active Substance: OMALIZUMAB
     Indication: CHRONIC SPONTANEOUS URTICARIA
     Route: 058
     Dates: start: 20150917

REACTIONS (5)
  - Confusional state [Unknown]
  - Fibromyalgia [Unknown]
  - Compression fracture [Unknown]
  - Breast cancer [Unknown]
  - Urticaria [Unknown]
